FAERS Safety Report 16804867 (Version 4)
Quarter: 2020Q1

REPORT INFORMATION
  Report Type: Spontaneous
  Country: CA (occurrence: CA)
  Receive Date: 20190913
  Receipt Date: 20200107
  Transmission Date: 20200409
  Serious: Yes (Life-Threatening, Other)
  Sender: FDA-Public Use
  Company Number: CA-PFIZER INC-2019379802

PATIENT
  Age: 70 Year
  Sex: Female
  Weight: 63 kg

DRUGS (2)
  1. HEPARIN SODIUM. [Suspect]
     Active Substance: HEPARIN SODIUM
     Indication: THROMBOSIS PROPHYLAXIS
     Dosage: 5000 IU, 2X/DAY (UNFRACTIONATED HEPARIN (UFH))
     Route: 058
  2. HEPARIN SODIUM. [Suspect]
     Active Substance: HEPARIN SODIUM
     Dosage: 5000 IU, 2X/DAY (UNFRACTIONATED HEPARIN (UFH))
     Route: 058

REACTIONS (4)
  - Disseminated intravascular coagulation [Recovered/Resolved]
  - Heparin-induced thrombocytopenia [Recovered/Resolved]
  - Hypofibrinogenaemia [Recovered/Resolved]
  - Deep vein thrombosis [Recovered/Resolved]
